FAERS Safety Report 18540779 (Version 2)
Quarter: 2020Q4

REPORT INFORMATION
  Report Type: Spontaneous
  Country: US (occurrence: US)
  Receive Date: 20201124
  Receipt Date: 20201209
  Transmission Date: 20210114
  Serious: No
  Sender: FDA-Public Use
  Company Number: US-ASTRAZENECA-2020SF53725

PATIENT
  Age: 442 Month
  Sex: Female

DRUGS (2)
  1. FASENRA [Suspect]
     Active Substance: BENRALIZUMAB
     Dosage: 30.0MG UNKNOWN
     Route: 058
     Dates: start: 202010
  2. TOBRAMYCIN. [Concomitant]
     Active Substance: TOBRAMYCIN
     Indication: CYSTIC FIBROSIS
     Dosage: DAILY
     Route: 017
     Dates: start: 20201030

REACTIONS (4)
  - Device leakage [Recovered/Resolved]
  - Injection site pain [Recovered/Resolved]
  - Wrong technique in device usage process [Unknown]
  - Incorrect dose administered by device [Unknown]

NARRATIVE: CASE EVENT DATE: 202010
